FAERS Safety Report 20193405 (Version 2)
Quarter: 2022Q1

REPORT INFORMATION
  Report Type: Report from Study
  Country: DE (occurrence: DE)
  Receive Date: 20211216
  Receipt Date: 20220118
  Transmission Date: 20220423
  Serious: Yes (Hospitalization, Other)
  Sender: FDA-Public Use
  Company Number: DE-BRISTOL-MYERS SQUIBB COMPANY-BMS-2021-134148

PATIENT
  Age: 69 Year
  Sex: Male
  Weight: 85 kg

DRUGS (6)
  1. NIVOLUMAB [Suspect]
     Active Substance: NIVOLUMAB
     Indication: Gastric cancer
     Dosage: 240 MILLIGRAM
     Route: 065
     Dates: start: 20210118, end: 20211206
  2. OXALIPLATIN [Suspect]
     Active Substance: OXALIPLATIN
     Indication: Gastric cancer
     Dosage: 189 MILLIGRAM
     Route: 065
     Dates: end: 20211004
  3. FLUOROURACIL [Suspect]
     Active Substance: FLUOROURACIL
     Indication: Gastric cancer
     Dosage: 888 MILLIGRAM
     Route: 040
     Dates: end: 20200104
  4. FLUOROURACIL [Suspect]
     Active Substance: FLUOROURACIL
     Dosage: 5328 MILLIGRAM
     Route: 042
     Dates: end: 20200104
  5. LEUCOVORIN CALCIUM [Suspect]
     Active Substance: LEUCOVORIN CALCIUM
     Indication: Gastric cancer
     Dosage: 888 MILLIGRAM
     Route: 065
     Dates: end: 20200104
  6. IPILIMUMAB [Suspect]
     Active Substance: IPILIMUMAB
     Indication: Gastric cancer
     Dosage: 85 MILLIGRAM
     Route: 065
     Dates: start: 20210118, end: 20211108

REACTIONS (2)
  - Abdominal pain [Not Recovered/Not Resolved]
  - COVID-19 [Unknown]

NARRATIVE: CASE EVENT DATE: 20211208
